FAERS Safety Report 7868907-0 (Version None)
Quarter: 2011Q4

REPORT INFORMATION
  Report Type: 
  Country: None (occurrence: None)
  Receive Date: 20111028
  Receipt Date: 20101221
  Transmission Date: 20120403
  Serious: No
  Sender: FDA-Public Use
  Company Number: US-AMGEN-USASP2010010549

PATIENT
  Age: 66 Year
  Sex: Male

DRUGS (2)
  1. ENBREL [Suspect]
     Indication: PSORIASIS
     Dates: start: 20050601, end: 20100901
  2. ENBREL [Suspect]
     Indication: ARTHRITIS

REACTIONS (3)
  - BONE DISORDER [None]
  - MOBILITY DECREASED [None]
  - ARTHRALGIA [None]
